FAERS Safety Report 16688696 (Version 1)
Quarter: 2019Q3

REPORT INFORMATION
  Report Type: Spontaneous
  Country: PL (occurrence: PL)
  Receive Date: 20190809
  Receipt Date: 20190809
  Transmission Date: 20191004
  Serious: Yes (Other)
  Sender: FDA-Public Use
  Company Number: PL-PFIZER INC-2019336027

PATIENT
  Age: 65 Year
  Sex: Female
  Weight: 73 kg

DRUGS (12)
  1. SUTENT [Suspect]
     Active Substance: SUNITINIB MALATE
     Dosage: 37.5 MG, UNK
     Route: 048
     Dates: start: 20141105, end: 20150316
  2. METYPRED [METHYLPREDNISOLONE] [Concomitant]
     Active Substance: METHYLPREDNISOLONE
     Dosage: 2 X 1 TAB
  3. FUROSEMIDE. [Concomitant]
     Active Substance: FUROSEMIDE
     Dosage: 1 X 1 TAB
  4. RAMIPRIL. [Concomitant]
     Active Substance: RAMIPRIL
     Dosage: 1 X 1 TAB
  5. CONCOR COR [Concomitant]
     Active Substance: BISOPROLOL FUMARATE
     Dosage: 1 X 1 TAB
  6. CAPTOPRIL. [Concomitant]
     Active Substance: CAPTOPRIL
     Dosage: AD HOC
  7. CYCLONAMINE [Concomitant]
     Active Substance: ETHAMSYLATE
     Dosage: 3 X 2 TAB
  8. SUTENT [Suspect]
     Active Substance: SUNITINIB MALATE
     Indication: RENAL CANCER
     Dosage: 50 MG, UNK
     Route: 048
     Dates: start: 20140813, end: 20141105
  9. SUTENT [Suspect]
     Active Substance: SUNITINIB MALATE
     Dosage: 50 MG, UNK
     Route: 048
     Dates: start: 20150316
  10. NIMESIL [Concomitant]
     Active Substance: NIMESULIDE
     Dosage: UNK
  11. BISOCARD [Concomitant]
     Active Substance: BISOPROLOL
     Dosage: 1 X 1 TAB
  12. HEVIRAN [ACICLOVIR] [Concomitant]
     Dosage: 5 X DAILY

REACTIONS (11)
  - Renal failure [Recovered/Resolved]
  - Anaemia [Recovered/Resolved]
  - Leukopenia [Recovered/Resolved]
  - Thrombocytopenia [Recovered/Resolved]
  - Oedema peripheral [Recovered/Resolved]
  - Hypertension [Recovered/Resolved]
  - Hypothyroidism [Recovered/Resolved]
  - Epistaxis [Recovered/Resolved]
  - Genital haemorrhage [Recovered/Resolved]
  - Neutropenia [Recovered/Resolved]
  - Herpes zoster [Recovered/Resolved]

NARRATIVE: CASE EVENT DATE: 20140813
